FAERS Safety Report 23826574 (Version 1)
Quarter: 2024Q2

REPORT INFORMATION
  Report Type: Report from Study
  Country: CO (occurrence: CO)
  Receive Date: 20240507
  Receipt Date: 20240507
  Transmission Date: 20240715
  Serious: Yes (Hospitalization, Other)
  Sender: FDA-Public Use
  Company Number: CO-ZAMBON-202401242COR

PATIENT
  Age: 70 Year
  Sex: Female
  Weight: 52 kg

DRUGS (6)
  1. XADAGO [Suspect]
     Active Substance: SAFINAMIDE MESYLATE
     Indication: Parkinson^s disease
     Dosage: 50 MG, DAILY
     Route: 048
     Dates: start: 20240401, end: 20240419
  2. XADAGO [Suspect]
     Active Substance: SAFINAMIDE MESYLATE
     Dosage: 100 MG, DAILY
     Route: 048
     Dates: start: 20240420
  3. CARBIDOPA\LEVODOPA [Concomitant]
     Active Substance: CARBIDOPA\LEVODOPA
     Indication: Parkinson^s disease
     Dosage: NOT PROVIDED
  4. PRAMIPEXOLE [Concomitant]
     Active Substance: PRAMIPEXOLE\PRAMIPEXOLE DIHYDROCHLORIDE
     Indication: Parkinson^s disease
     Dosage: NOT PROVIDED
  5. VITAMIN D NOS [Concomitant]
     Active Substance: VITAMIN D NOS
     Dosage: NOT PROVIDED
  6. MELATONIN [Concomitant]
     Active Substance: MELATONIN
     Indication: Parkinson^s disease
     Dosage: NOT PROVIDED

REACTIONS (2)
  - Hypotension [Recovering/Resolving]
  - Hallucination [Recovering/Resolving]

NARRATIVE: CASE EVENT DATE: 20240420
